FAERS Safety Report 10233066 (Version 1)
Quarter: 2014Q2

REPORT INFORMATION
  Report Type: Spontaneous
  Country: US (occurrence: None)
  Receive Date: 20140611
  Receipt Date: 20140611
  Transmission Date: 20141212
  Serious: Yes (Hospitalization)
  Sender: FDA-Public Use
  Company Number: None

PATIENT
  Age: 68 Year
  Sex: Male
  Weight: 113.4 kg

DRUGS (2)
  1. SPIRONOLACTONE [Suspect]
     Route: 048
     Dates: start: 20120321, end: 20131109
  2. LISINOPRIL [Suspect]
     Dosage: 40 MG EVERY DAY PO
     Route: 048
     Dates: start: 20100610, end: 20131109

REACTIONS (6)
  - Hypotension [None]
  - Diarrhoea [None]
  - Renal failure acute [None]
  - Bradycardia [None]
  - Syncope [None]
  - Dialysis [None]
